FAERS Safety Report 12183754 (Version 1)
Quarter: 2016Q1

REPORT INFORMATION
  Report Type: Spontaneous
  Country: US (occurrence: US)
  Receive Date: 20160316
  Receipt Date: 20160316
  Transmission Date: 20160526
  Serious: Yes (Other)
  Sender: FDA-Public Use
  Company Number: US-BEH-2016060028

PATIENT
  Sex: Female
  Weight: 67 kg

DRUGS (20)
  1. MULTIVITAMIN [Concomitant]
     Active Substance: VITAMINS
  2. SKELAXIN [Concomitant]
     Active Substance: METAXALONE
  3. BONIVA [Concomitant]
     Active Substance: IBANDRONATE SODIUM
  4. TOPROL XL [Concomitant]
     Active Substance: METOPROLOL SUCCINATE
  5. DIPHENHYDRAMINE. [Concomitant]
     Active Substance: DIPHENHYDRAMINE
  6. LISINOPRIL. [Concomitant]
     Active Substance: LISINOPRIL
  7. XANAX [Concomitant]
     Active Substance: ALPRAZOLAM
  8. COENZYME Q10 [Concomitant]
     Active Substance: UBIDECARENONE
  9. EFFEXOR [Concomitant]
     Active Substance: VENLAFAXINE HYDROCHLORIDE
  10. MELOXICAM. [Concomitant]
     Active Substance: MELOXICAM
  11. SIMVASTATIN. [Concomitant]
     Active Substance: SIMVASTATIN
  12. LMX [Concomitant]
     Active Substance: LIDOCAINE
  13. RELPAX [Concomitant]
     Active Substance: ELETRIPTAN HYDROBROMIDE
  14. FISH OIL [Concomitant]
     Active Substance: FISH OIL
  15. ADDERALL [Concomitant]
     Active Substance: AMPHETAMINE ASPARTATE\AMPHETAMINE SULFATE\DEXTROAMPHETAMINE SACCHARATE\DEXTROAMPHETAMINE SULFATE
  16. PROAIR HFA [Concomitant]
     Active Substance: ALBUTEROL SULFATE
  17. HIZENTRA [Suspect]
     Active Substance: HUMAN IMMUNOGLOBULIN G
     Indication: IMMUNODEFICIENCY COMMON VARIABLE
  18. EPIPEN [Concomitant]
     Active Substance: EPINEPHRINE
  19. HYDROXYCHLOROQUINE [Concomitant]
     Active Substance: HYDROXYCHLOROQUINE
  20. NEXIUM [Concomitant]
     Active Substance: ESOMEPRAZOLE MAGNESIUM

REACTIONS (1)
  - Pneumonia [Unknown]
